FAERS Safety Report 7201062-9 (Version None)
Quarter: 2010Q4

REPORT INFORMATION
  Report Type: 
  Country: None (occurrence: None)
  Receive Date: 20101229
  Receipt Date: 20101220
  Transmission Date: 20110411
  Serious: Yes (Hospitalization)
  Sender: FDA-Public Use
  Company Number: US-BIOGENIDEC-2010BI021796

PATIENT
  Age: 55 Year
  Sex: Female

DRUGS (5)
  1. AVONEX [Suspect]
     Indication: MULTIPLE SCLEROSIS
     Route: 030
     Dates: start: 20090109
  2. AVONEX [Suspect]
     Route: 030
     Dates: start: 20090109
  3. AVONEX [Suspect]
     Route: 030
     Dates: start: 20040801, end: 20040901
  4. AVONEX [Suspect]
     Route: 030
     Dates: start: 20060201, end: 20070901
  5. AVONEX [Suspect]
     Route: 030
     Dates: start: 19990701

REACTIONS (6)
  - ARTHRITIS INFECTIVE [None]
  - BLOOD PRESSURE INCREASED [None]
  - BODY TEMPERATURE INCREASED [None]
  - CARDIAC ENZYMES INCREASED [None]
  - CARDIOVASCULAR EVALUATION [None]
  - STENT PLACEMENT [None]
